FAERS Safety Report 7396381-X (Version None)
Quarter: 2011Q2

REPORT INFORMATION
  Report Type: 
  Country: None (occurrence: None)
  Receive Date: 20110406
  Receipt Date: 20091226
  Transmission Date: 20111010
  Serious: Yes (Death, Other)
  Sender: FDA-Public Use
  Company Number: US-BAYER-200943549NA

PATIENT
  Sex: Female
  Weight: 91.61 kg

DRUGS (9)
  1. TRASYLOL [Suspect]
     Indication: CORONARY ARTERY BYPASS
     Dosage: UNK
     Route: 042
     Dates: start: 20070329
  2. AMIODARONE HCL [Concomitant]
     Route: 048
  3. TRASYLOL [Suspect]
     Indication: AORTIC VALVE REPLACEMENT
  4. COUMADIN [Concomitant]
     Dosage: UNK
     Route: 048
     Dates: start: 20050101, end: 20070101
  5. PROZAC [Concomitant]
     Dosage: UNK
     Route: 048
     Dates: start: 20050101, end: 20070101
  6. PRILOSEC [Concomitant]
     Dosage: UNK
     Route: 048
     Dates: start: 20030101, end: 20070101
  7. LANOXIN [Concomitant]
     Dosage: UNK
     Route: 048
     Dates: start: 20030101, end: 20070101
  8. COZAAR [Concomitant]
     Route: 048
  9. PRAVACHOL [Concomitant]
     Route: 048

REACTIONS (6)
  - RENAL FAILURE [None]
  - DEATH [None]
  - INJURY [None]
  - UNEVALUABLE EVENT [None]
  - RENAL INJURY [None]
  - PAIN [None]
